FAERS Safety Report 8417002-0 (Version None)
Quarter: 2012Q2

REPORT INFORMATION
  Report Type: 
  Country: None (occurrence: None)
  Receive Date: 20120606
  Receipt Date: 20120524
  Transmission Date: 20120825
  Serious: Yes (Hospitalization, Other)
  Sender: FDA-Public Use
  Company Number: GB-ELI_LILLY_AND_COMPANY-GB201205009178

PATIENT
  Age: 71 Year
  Sex: Male

DRUGS (5)
  1. SOMATOSTATIN [Concomitant]
  2. FUROSEMIDE [Concomitant]
     Indication: FLUID RETENTION
     Dosage: 3 DF, QD
  3. HUMULIN 70/30 [Suspect]
     Indication: DIABETES MELLITUS
     Dosage: UNK
     Dates: start: 20100101
  4. RAMIPRIL [Concomitant]
  5. METFORMIN HCL [Concomitant]

REACTIONS (7)
  - CORONARY ARTERY BYPASS [None]
  - CARDIAC FIBRILLATION [None]
  - BLOOD GLUCOSE INCREASED [None]
  - DRY MOUTH [None]
  - EXTRASYSTOLES [None]
  - GAIT DISTURBANCE [None]
  - FLUID RETENTION [None]
